FAERS Safety Report 9720535 (Version 2)
Quarter: 2013Q4

REPORT INFORMATION
  Report Type: Spontaneous
  Country: US (occurrence: US)
  Receive Date: 20131129
  Receipt Date: 20131224
  Transmission Date: 20140711
  Serious: Yes (Other)
  Sender: FDA-Public Use
  Company Number: US-JNJFOC-20131114001

PATIENT
  Age: 87 Year
  Sex: Male
  Weight: 65.77 kg

DRUGS (5)
  1. XARELTO [Suspect]
     Indication: THROMBOSIS
     Route: 048
     Dates: start: 20131016, end: 20131106
  2. XARELTO [Suspect]
     Indication: THROMBOSIS
     Route: 048
     Dates: start: 20131107
  3. CARDURA [Concomitant]
     Indication: PROSTATIC DISORDER
     Route: 048
  4. CITALOPRAM [Concomitant]
     Indication: DEPRESSION
     Route: 048
  5. LISINOPRIL [Concomitant]
     Indication: HYPERTENSION
     Route: 048
     Dates: start: 201310

REACTIONS (4)
  - Thrombosis [Not Recovered/Not Resolved]
  - Joint swelling [Recovering/Resolving]
  - Drug dose omission [Recovered/Resolved]
  - Local swelling [Not Recovered/Not Resolved]
